FAERS Safety Report 22851370 (Version 3)
Quarter: 2023Q4

REPORT INFORMATION
  Report Type: Spontaneous
  Country: US (occurrence: US)
  Receive Date: 20230822
  Receipt Date: 20231006
  Transmission Date: 20240109
  Serious: No
  Sender: FDA-Public Use
  Company Number: US-Calliditas-2023CAL01041

PATIENT
  Age: 35 Year
  Sex: Female

DRUGS (2)
  1. TARPEYO [Suspect]
     Active Substance: BUDESONIDE
     Indication: IgA nephropathy
     Dosage: 16MG (4MG CAPSULES) ONCE DAILY
     Route: 048
     Dates: start: 20230112
  2. LOSARTAN [Concomitant]
     Active Substance: LOSARTAN

REACTIONS (4)
  - Swelling face [Recovering/Resolving]
  - Peripheral swelling [Recovering/Resolving]
  - Bruxism [Not Recovered/Not Resolved]
  - Stress [Not Recovered/Not Resolved]

NARRATIVE: CASE EVENT DATE: 20230628
